FAERS Safety Report 6533367-9 (Version None)
Quarter: 2010Q1

REPORT INFORMATION
  Report Type: 
  Country: None (occurrence: None)
  Receive Date: 20100111
  Receipt Date: 20100105
  Transmission Date: 20100710
  Serious: Yes (Hospitalization)
  Sender: FDA-Public Use
  Company Number: D0063276B

PATIENT
  Sex: Male
  Weight: 3.1 kg

DRUGS (1)
  1. SEROXAT [Suspect]
     Indication: PANIC DISORDER

REACTIONS (5)
  - BLOOD TEST ABNORMAL [None]
  - DRUG EXPOSURE DURING PREGNANCY [None]
  - MUSCLE TWITCHING [None]
  - RESTLESSNESS [None]
  - WITHDRAWAL SYNDROME [None]
